FAERS Safety Report 8118481-9 (Version None)
Quarter: 2012Q1

REPORT INFORMATION
  Report Type: 
  Country: None (occurrence: None)
  Receive Date: 20120207
  Receipt Date: 20120202
  Transmission Date: 20120608
  Serious: Yes (Other)
  Sender: FDA-Public Use
  Company Number: GB-PFIZER INC-2012017644

PATIENT
  Sex: Female

DRUGS (2)
  1. FELDENE [Suspect]
     Indication: MUSCULOSKELETAL CHEST PAIN
     Route: 061
  2. FELDENE [Suspect]
     Indication: BACK PAIN

REACTIONS (2)
  - STILLBIRTH [None]
  - PREMATURE SEPARATION OF PLACENTA [None]
